FAERS Safety Report 6852511-7 (Version None)
Quarter: 2010Q3

REPORT INFORMATION
  Report Type: 
  Country: None (occurrence: None)
  Receive Date: 20100717
  Receipt Date: 20071112
  Transmission Date: 20110219
  Serious: No
  Sender: FDA-Public Use
  Company Number: US-PFIZER INC-2007097850

PATIENT

DRUGS (1)
  1. CHANTIX [Suspect]
     Dates: start: 20070511

REACTIONS (2)
  - BRONCHITIS [None]
  - TOBACCO USER [None]
